FAERS Safety Report 7208507-9 (Version None)
Quarter: 2011Q1

REPORT INFORMATION
  Report Type: 
  Country: None (occurrence: None)
  Receive Date: 20110104
  Receipt Date: 20100614
  Transmission Date: 20110831
  Serious: Yes (Hospitalization, Other)
  Sender: FDA-Public Use
  Company Number: US-BAYER-200938978NA

PATIENT
  Sex: Female
  Weight: 86.364 kg

DRUGS (4)
  1. YASMIN [Suspect]
     Route: 048
  2. YAZ [Suspect]
     Indication: PREMENSTRUAL SYNDROME
     Dosage: PHARMACY RECORDS: PRESCRIPTIONS FILLED FROM 18-MAR-2008 TO 16-FEB-2009
     Route: 048
     Dates: start: 20080225
  3. YAZ [Suspect]
     Route: 048
     Dates: start: 20080701, end: 20090301
  4. YAZ [Suspect]

REACTIONS (4)
  - PAIN IN EXTREMITY [None]
  - GAIT DISTURBANCE [None]
  - DEEP VEIN THROMBOSIS [None]
  - INTRACARDIAC THROMBUS [None]
